FAERS Safety Report 15236217 (Version 2)
Quarter: 2018Q4

REPORT INFORMATION
  Report Type: Spontaneous
  Country: US (occurrence: US)
  Receive Date: 20180803
  Receipt Date: 20181113
  Transmission Date: 20190204
  Serious: Yes (Hospitalization)
  Sender: FDA-Public Use
  Company Number: US-PTC THERAPEUTICS, INC.-US-2018PTC000760

PATIENT

DRUGS (2)
  1. EMFLAZA [Suspect]
     Active Substance: DEFLAZACORT
     Dosage: 0.75 ML, QD
     Route: 048
     Dates: start: 20170806
  2. EMFLAZA [Suspect]
     Active Substance: DEFLAZACORT
     Indication: MUSCULAR DYSTROPHY
     Dosage: 0.75 ML, QD
     Route: 048
     Dates: start: 20171019

REACTIONS (6)
  - Craniocerebral injury [Not Recovered/Not Resolved]
  - Feeding tube user [Unknown]
  - Memory impairment [Unknown]
  - Decreased appetite [Unknown]
  - Disturbance in attention [Unknown]
  - Asthenia [Unknown]

NARRATIVE: CASE EVENT DATE: 2018
